FAERS Safety Report 15658440 (Version 1)
Quarter: 2018Q4

REPORT INFORMATION
  Report Type: Report from Study
  Country: US (occurrence: US)
  Receive Date: 20181126
  Receipt Date: 20181126
  Transmission Date: 20190205
  Serious: Yes (Death, Other)
  Sender: FDA-Public Use
  Company Number: US-GILEAD-2018-0373526

PATIENT
  Age: 21 Year
  Sex: Male

DRUGS (7)
  1. LEVAQUIN [Concomitant]
     Active Substance: LEVOFLOXACIN
  2. MORPHINE SULFATE. [Concomitant]
     Active Substance: MORPHINE SULFATE
  3. GABAPENTIN. [Concomitant]
     Active Substance: GABAPENTIN
  4. IDELALISIB [Suspect]
     Active Substance: IDELALISIB
     Indication: BURKITT^S LYMPHOMA
     Dosage: 1 DF, BID
     Route: 048
     Dates: start: 20180906
  5. MACROBID [CLARITHROMYCIN] [Concomitant]
  6. ZARXIO [Concomitant]
     Active Substance: FILGRASTIM-SNDZ
  7. MYCOSTATIN [Concomitant]
     Active Substance: NYSTATIN

REACTIONS (1)
  - Death [Fatal]

NARRATIVE: CASE EVENT DATE: 20181120
